FAERS Safety Report 9185367 (Version 1)
Quarter: 2013Q1

REPORT INFORMATION
  Report Type: Spontaneous
  Country: US (occurrence: None)
  Receive Date: 20130325
  Receipt Date: 20130325
  Transmission Date: 20140127
  Serious: Yes (Life-Threatening, Hospitalization)
  Sender: FDA-Public Use
  Company Number: None

PATIENT
  Age: 22 Year
  Sex: Male
  Weight: 55.9 kg

DRUGS (32)
  1. FENTANYL [Suspect]
     Indication: ANALGESIC THERAPY
     Dosage: INFUSION
     Route: 042
     Dates: start: 20130310, end: 20130311
  2. APAP [Concomitant]
  3. AMLODIPINE [Concomitant]
  4. BUPRENORPHINE [Concomitant]
  5. D5 [Concomitant]
  6. DEXTROSE [Concomitant]
  7. FAMOTIDINE [Concomitant]
  8. FENTANYL DRIP [Concomitant]
  9. GABAPENTIN [Concomitant]
  10. HYDROMORPHONE [Concomitant]
  11. IBUPROFEN [Concomitant]
  12. INSULIN ASPART SLIDING SCALE [Concomitant]
  13. INSULIN GLARGINE [Concomitant]
  14. INSULIN REGULAR [Concomitant]
  15. INSULIN REGULAR DRIP [Concomitant]
  16. DUONEB [Concomitant]
  17. KETOROLAC [Concomitant]
  18. LEVETIRACETAM [Concomitant]
  19. LORAZEPAM [Concomitant]
  20. MAGNESIUM SULFATE [Concomitant]
  21. METOCLOPRAMIDE [Concomitant]
  22. METRONIDAZOLE [Concomitant]
  23. NOREPINEPHRINE DRIP [Concomitant]
  24. ONDANSETRON [Concomitant]
  25. PANTOPRAZOLE [Concomitant]
  26. PHENYLEPHRINE DRIP [Concomitant]
  27. PIP/TAZO [Concomitant]
  28. KCL [Concomitant]
  29. PROCHLORPERAZINE [Concomitant]
  30. SODIUM CHLORIDE [Concomitant]
  31. VANCOMYCIN [Concomitant]
  32. VASOPRESSIN DRIP [Concomitant]

REACTIONS (4)
  - Hyperpyrexia [None]
  - Mental status changes [None]
  - Hypoglycaemia [None]
  - Cardio-respiratory arrest [None]
